FAERS Safety Report 11030954 (Version 1)
Quarter: 2015Q2

REPORT INFORMATION
  Report Type: Spontaneous
  Country: US (occurrence: US)
  Receive Date: 20150415
  Receipt Date: 20150415
  Transmission Date: 20150821
  Serious: No
  Sender: FDA-Public Use
  Company Number: US-SA-2015SA016511

PATIENT
  Age: 63 Year
  Sex: Male

DRUGS (2)
  1. AFREZZA [Suspect]
     Active Substance: INSULIN HUMAN
     Indication: TYPE 2 DIABETES MELLITUS
     Dosage: FORM-INHALER?FREQUENCY-WITH MEALS DOSE:4 UNIT(S)
     Route: 065
     Dates: start: 20150205
  2. AFREZZA [Suspect]
     Active Substance: INSULIN HUMAN
     Indication: TYPE 2 DIABETES MELLITUS
     Dosage: FORM-INHALER?FREQUENCY-WITH MEALS DOSE:4 UNIT(S)
     Route: 065
     Dates: start: 20150205

REACTIONS (2)
  - Extra dose administered [Unknown]
  - Blood glucose increased [Unknown]

NARRATIVE: CASE EVENT DATE: 20150205
